FAERS Safety Report 20593624 (Version 1)
Quarter: 2022Q1

REPORT INFORMATION
  Report Type: Spontaneous
  Country: US (occurrence: None)
  Receive Date: 20220315
  Receipt Date: 20220315
  Transmission Date: 20220423
  Serious: No
  Sender: FDA-Public Use
  Company Number: US-ROCHE-2890167

PATIENT
  Sex: Female
  Weight: 80.812 kg

DRUGS (5)
  1. XOLAIR [Suspect]
     Active Substance: OMALIZUMAB
     Indication: Idiopathic urticaria
     Dosage: ONGOING
     Route: 065
     Dates: start: 20080404
  2. DOXEPIN HCL [Concomitant]
     Active Substance: DOXEPIN HYDROCHLORIDE
     Route: 048
     Dates: start: 20201028, end: 20201028
  3. PREDNISONE [Concomitant]
     Active Substance: PREDNISONE
     Route: 048
     Dates: start: 20180404, end: 20201028
  4. XYZAL [Concomitant]
     Active Substance: LEVOCETIRIZINE DIHYDROCHLORIDE
     Route: 048
     Dates: start: 20180504
  5. COLLAGEN PLUS C [Concomitant]
     Route: 048
     Dates: start: 20201028

REACTIONS (1)
  - Nasopharyngitis [Recovered/Resolved]
